FAERS Safety Report 8154557-8 (Version None)
Quarter: 2012Q1

REPORT INFORMATION
  Report Type: 
  Country: None (occurrence: None)
  Receive Date: 20120221
  Receipt Date: 20120211
  Transmission Date: 20120608
  Serious: Yes (Hospitalization)
  Sender: FDA-Public Use
  Company Number: CA-ELI_LILLY_AND_COMPANY-CA201202003606

PATIENT
  Age: 62 Year
  Sex: Female

DRUGS (15)
  1. LASIX [Concomitant]
  2. FOLIC ACID [Concomitant]
  3. GABAPENTIN [Concomitant]
  4. VITAMIN D [Concomitant]
  5. TEMSIROLIMUS [Concomitant]
  6. PANTOPRAZOLE SODIUM [Concomitant]
  7. ADVAIR DISKUS 100/50 [Concomitant]
  8. ASCORBIC ACID [Concomitant]
  9. GRAVOL TAB [Concomitant]
  10. OXYBUTYNIN [Concomitant]
  11. HYDROMORPHONE HCL [Concomitant]
  12. WARFARIN SODIUM [Concomitant]
  13. FORTEO [Suspect]
     Indication: OSTEOPOROSIS
     Dosage: 20 UG, QD
     Route: 058
     Dates: start: 20091203, end: 20111201
  14. OXAZEPAM [Concomitant]
  15. TYLENOL (CAPLET) [Concomitant]

REACTIONS (2)
  - POST PROCEDURAL INFECTION [None]
  - HIP ARTHROPLASTY [None]
